FAERS Safety Report 6464633-3 (Version None)
Quarter: 2009Q4

REPORT INFORMATION
  Report Type: 
  Country: None (occurrence: None)
  Receive Date: 20091201
  Receipt Date: 20091123
  Transmission Date: 20100525
  Serious: No
  Sender: FDA-Public Use
  Company Number: US-ROXANE LABORATORIES, INC.-2009-RO-00810RO

PATIENT
  Sex: Female
  Weight: 75 kg

DRUGS (2)
  1. FLUTICASONE [Suspect]
     Indication: MULTIPLE ALLERGIES
     Route: 045
     Dates: start: 20090601, end: 20090806
  2. FLUTICASONE [Suspect]
     Indication: RHINORRHOEA

REACTIONS (3)
  - AGEUSIA [None]
  - ANOSMIA [None]
  - PAROSMIA [None]
